FAERS Safety Report 9607405 (Version 1)
Quarter: 2013Q4

REPORT INFORMATION
  Report Type: Spontaneous
  Country: US (occurrence: None)
  Receive Date: 20131007
  Receipt Date: 20131007
  Transmission Date: 20140711
  Serious: No
  Sender: FDA-Public Use
  Company Number: None

PATIENT
  Age: 75 Year
  Sex: Female
  Weight: 97.52 kg

DRUGS (1)
  1. ZOLPIDEM [Suspect]
     Indication: SLEEP DISORDER
     Dosage: 1 TABLET ONCE DAILY ?1 YEAR OR MORE
     Route: 048

REACTIONS (3)
  - Muscle spasms [None]
  - Middle insomnia [None]
  - Drug dependence [None]
